FAERS Safety Report 22124510 (Version 1)
Quarter: 2023Q1

REPORT INFORMATION
  Report Type: Spontaneous
  Country: FR (occurrence: FR)
  Receive Date: 20230322
  Receipt Date: 20230322
  Transmission Date: 20230418
  Serious: Yes (Hospitalization)
  Sender: FDA-Public Use
  Company Number: None

PATIENT
  Age: 52 Year
  Sex: Female

DRUGS (2)
  1. FROVATRIPTAN SUCCINATE [Suspect]
     Active Substance: FROVATRIPTAN SUCCINATE
     Indication: Migraine
     Dosage: 2.5 MILLIGRAM
     Route: 048
     Dates: start: 20230224
  2. LOVENOX [Suspect]
     Active Substance: ENOXAPARIN SODIUM
     Indication: Meningioma surgery
     Dosage: 4000 INTERNATIONAL UNIT
     Route: 058
     Dates: start: 20230222

REACTIONS (1)
  - Haemorrhage [Not Recovered/Not Resolved]
